FAERS Safety Report 9983990 (Version 2)
Quarter: 2014Q1

REPORT INFORMATION
  Report Type: Report from Study
  Country: US (occurrence: US)
  Receive Date: 20140307
  Receipt Date: 20140307
  Transmission Date: 20141002
  Serious: Yes (Hospitalization, Other)
  Sender: FDA-Public Use
  Company Number: US-ABBVIE-13P-163-1132899-00

PATIENT
  Age: 28 Year
  Sex: Male

DRUGS (3)
  1. HUMIRA [Suspect]
     Indication: CROHN^S DISEASE
     Dates: start: 201103, end: 201307
  2. HUMIRA [Suspect]
     Route: 058
     Dates: start: 201307
  3. ADDERALL [Concomitant]
     Indication: ATTENTION DEFICIT/HYPERACTIVITY DISORDER

REACTIONS (2)
  - Crohn^s disease [Recovering/Resolving]
  - Arthroscopy [Recovered/Resolved]
